FAERS Safety Report 15233686 (Version 12)
Quarter: 2019Q4

REPORT INFORMATION
  Report Type: Report from Study
  Country: US (occurrence: US)
  Receive Date: 20180802
  Receipt Date: 20191023
  Transmission Date: 20200122
  Serious: Yes (Hospitalization)
  Sender: FDA-Public Use
  Company Number: US-ACTELION-A-NJ2018-176686

PATIENT
  Sex: Female
  Weight: 90.7 kg

DRUGS (3)
  1. VENTAVIS [Suspect]
     Active Substance: ILOPROST
     Dosage: 5 MCG, 5-9 TIMES PER DAY
     Route: 055
  2. OPSUMIT [Suspect]
     Active Substance: MACITENTAN
     Indication: PULMONARY ARTERIAL HYPERTENSION
     Dosage: 10 MG, QD
     Route: 048
     Dates: start: 20140729
  3. VENTAVIS [Suspect]
     Active Substance: ILOPROST
     Indication: PULMONARY ARTERIAL HYPERTENSION
     Dosage: 5 MCG, 6-9 TIMES PER DAY
     Route: 055

REACTIONS (7)
  - Dyspnoea [Unknown]
  - Fall [Unknown]
  - Bacterial infection [Unknown]
  - Pneumonia [Unknown]
  - Unevaluable event [Unknown]
  - Product dose omission [Unknown]
  - Hospitalisation [Recovered/Resolved]
